FAERS Safety Report 4373288-3 (Version None)
Quarter: 2004Q2

REPORT INFORMATION
  Report Type: 
  Country: None (occurrence: None)
  Receive Date: 20040603
  Receipt Date: 20040521
  Transmission Date: 20050107
  Serious: Yes (Other)
  Sender: FDA-Public Use
  Company Number: S04-USA-02956-01

PATIENT
  Sex: Female

DRUGS (2)
  1. LEXAPRO [Suspect]
     Dosage: UNK
     Route: 065
     Dates: start: 20040301
  2. BIRTH CONTROL PILLS [Concomitant]

REACTIONS (1)
  - CONVULSION [None]
